FAERS Safety Report 6450059-5 (Version None)
Quarter: 2009Q4

REPORT INFORMATION
  Report Type: 
  Country: None (occurrence: None)
  Receive Date: 20091123
  Receipt Date: 20091116
  Transmission Date: 20100525
  Serious: Yes (Other)
  Sender: FDA-Public Use
  Company Number: US-ELI_LILLY_AND_COMPANY-US200910007129

PATIENT
  Sex: Female
  Weight: 73.923 kg

DRUGS (18)
  1. BYETTA [Suspect]
     Indication: TYPE 2 DIABETES MELLITUS
     Dosage: 5 UG, 2/D
     Dates: start: 20070101, end: 20070101
  2. BYETTA [Suspect]
     Dosage: 10 UG, 2/D
     Route: 058
     Dates: start: 20070101, end: 20090901
  3. BYETTA [Suspect]
     Dosage: 5 UG, 2/D
     Dates: start: 20090908, end: 20091009
  4. ASPIRIN [Concomitant]
     Dosage: 81 MG, DAILY (1/D)
  5. COZAAR [Concomitant]
     Dosage: 50 MG, DAILY (1/D)
  6. DEMADEX [Concomitant]
     Dosage: 60 MG, DAILY (1/D)
  7. PLAVIX [Concomitant]
     Dosage: 75 MG, DAILY (1/D)
  8. SYNTHROID [Concomitant]
     Dosage: 112 UG, DAILY (1/D)
  9. COREG [Concomitant]
     Dosage: 20 MG, DAILY (1/D)
  10. CRESTOR [Concomitant]
     Dosage: 5 MG, EACH EVENING
  11. FOSAMAX [Concomitant]
     Dosage: 70 MG, WEEKLY (1/W)
  12. PRILOSEC [Concomitant]
     Dosage: UNK, DAILY (1/D)
  13. CARBIDOPA + LEVODOPA [Concomitant]
     Dosage: UNK, EACH EVENING
  14. PROCRIT [Concomitant]
     Dosage: 40000 U, MONTHLY (1/M)
     Route: 058
  15. NITROSTAT [Concomitant]
     Dosage: UNK, AS NEEDED
  16. AMARYL [Concomitant]
     Dosage: 1 MG, DAILY (1/D)
  17. AMARYL [Concomitant]
     Dosage: UNK MG, DAILY (1/D)
  18. MULTIVITAMIN [Concomitant]
     Dosage: UNK, 2/D
     Route: 048

REACTIONS (4)
  - ALANINE AMINOTRANSFERASE INCREASED [None]
  - ARTHRALGIA [None]
  - PANCREATITIS [None]
  - WEIGHT DECREASED [None]
